FAERS Safety Report 18708327 (Version 1)
Quarter: 2021Q1

REPORT INFORMATION
  Report Type: Spontaneous
  Country: US (occurrence: US)
  Receive Date: 20210106
  Receipt Date: 20210106
  Transmission Date: 20210419
  Serious: No
  Sender: FDA-Public Use
  Company Number: US-ABBVIE-20K-163-3673896-00

PATIENT
  Age: 59 Year
  Sex: Female
  Weight: 59.02 kg

DRUGS (11)
  1. DAPSONE. [Concomitant]
     Active Substance: DAPSONE
     Indication: PROPHYLAXIS
  2. VENCLEXTA [Suspect]
     Active Substance: VENETOCLAX
     Dosage: PHARMACY SENT A DIFF PACKAGING SO NO LOT  INFOI
     Route: 048
     Dates: start: 20201019, end: 20201025
  3. ALLOPURINOL. [Concomitant]
     Active Substance: ALLOPURINOL
     Indication: PROPHYLAXIS
  4. VENCLEXTA [Suspect]
     Active Substance: VENETOCLAX
     Indication: LYMPHOCYTIC LYMPHOMA
     Route: 048
     Dates: start: 20200928, end: 20201004
  5. VENCLEXTA [Suspect]
     Active Substance: VENETOCLAX
     Dosage: PHARMACY SENT A DIFF PACKAGING SO NO LOT INFOI
     Route: 048
     Dates: start: 20201026, end: 20201123
  6. VENCLEXTA [Suspect]
     Active Substance: VENETOCLAX
     Route: 048
     Dates: start: 20201130
  7. VENCLEXTA [Suspect]
     Active Substance: VENETOCLAX
     Route: 048
     Dates: start: 20201005, end: 20201011
  8. UMBRALISIB [Concomitant]
     Active Substance: UMBRALISIB
     Indication: LYMPHOCYTIC LYMPHOMA
  9. VENCLEXTA [Suspect]
     Active Substance: VENETOCLAX
     Route: 048
     Dates: start: 20201012, end: 20201018
  10. VALACYCLOVIR [Concomitant]
     Active Substance: VALACYCLOVIR HYDROCHLORIDE
     Indication: HERPES ZOSTER
  11. UBLITUXIMAB [Concomitant]
     Active Substance: UBLITUXIMAB
     Indication: LYMPHOCYTIC LYMPHOMA

REACTIONS (5)
  - Skin exfoliation [Recovered/Resolved]
  - Oral mucosal exfoliation [Not Recovered/Not Resolved]
  - Neutrophil count decreased [Recovered/Resolved]
  - Eyelid exfoliation [Recovered/Resolved]
  - Alopecia [Not Recovered/Not Resolved]

NARRATIVE: CASE EVENT DATE: 202010
